FAERS Safety Report 4655125-2 (Version None)
Quarter: 2005Q2

REPORT INFORMATION
  Report Type: 
  Country: None (occurrence: None)
  Receive Date: 20050506
  Receipt Date: 20050421
  Transmission Date: 20051028
  Serious: Yes (Other)
  Sender: FDA-Public Use
  Company Number: DE-JNJFOC-20050500407

PATIENT
  Age: 28 Year
  Sex: Female

DRUGS (1)
  1. TRAMAL TROPFEN [Suspect]
     Route: 049

REACTIONS (2)
  - DRUG ABUSER [None]
  - DRUG EXPOSURE DURING PREGNANCY [None]
